FAERS Safety Report 7001024-0 (Version None)
Quarter: 2010Q3

REPORT INFORMATION
  Report Type: 
  Country: None (occurrence: None)
  Receive Date: 20100920
  Receipt Date: 20070904
  Transmission Date: 20110219
  Serious: Yes (Disabling, Other)
  Sender: FDA-Public Use
  Company Number: US-ASTRAZENECA-2006UW06092

PATIENT
  Age: 52 Year
  Sex: Female
  Weight: 117.5 kg

DRUGS (22)
  1. SEROQUEL [Suspect]
     Indication: ANXIETY
     Dosage: 50 MG - 200 MG
     Route: 048
     Dates: start: 20020605
  2. SEROQUEL [Suspect]
     Indication: AGITATION
     Dosage: 50 MG - 200 MG
     Route: 048
     Dates: start: 20020605
  3. RISPERDAL [Concomitant]
     Indication: SLEEP DISORDER
     Dosage: 2 MG - 5 MG
     Dates: start: 20000221
  4. EFFEXOR XR [Concomitant]
     Dates: start: 20060111
  5. STELAZINE [Concomitant]
     Route: 048
     Dates: start: 19841019
  6. COGENTIN [Concomitant]
     Dosage: 0.5 MG - 2 MG
     Dates: start: 19841019
  7. LIMBITROL [Concomitant]
     Dosage: 5/12.5 MG THREE TIMES A DAY
     Dates: start: 19841019
  8. THORAZINE [Concomitant]
     Dosage: 25 MG - 150 MG
     Route: 048
     Dates: start: 19841019
  9. CELEXA [Concomitant]
     Dates: start: 20020816
  10. SYMMETREL [Concomitant]
     Dates: start: 20070606
  11. ABILIFY [Concomitant]
     Dates: start: 20070109
  12. KLONOPIN [Concomitant]
     Indication: SLEEP DISORDER
     Dates: start: 20060111
  13. LEXAPRO [Concomitant]
     Dates: start: 20070109
  14. TRAZODONE HCL [Concomitant]
     Dates: start: 20000221, end: 20050609
  15. DEPAKOTE [Concomitant]
     Dates: start: 20060111
  16. INDERAL [Concomitant]
     Dates: start: 20060111
  17. PAXIL [Concomitant]
     Route: 048
     Dates: start: 20000221
  18. ATIVAN [Concomitant]
     Indication: ANXIETY
     Dosage: 1 MG P.R.N EVERY SIX TO EIGHT HOURS
     Route: 048
     Dates: start: 20060111
  19. ATIVAN [Concomitant]
     Indication: AGITATION
     Dosage: 1 MG P.R.N EVERY SIX TO EIGHT HOURS
     Route: 048
     Dates: start: 20060111
  20. ZYPREXA [Concomitant]
     Dosage: 5 MG - 10 MG
     Route: 048
     Dates: start: 19991025
  21. HALDOL [Concomitant]
     Indication: AGITATION
     Dates: start: 20000221
  22. LISINOPRIL [Concomitant]
     Indication: HYPERTENSION
     Dates: start: 20051209

REACTIONS (3)
  - DIABETES MELLITUS [None]
  - HYPERGLYCAEMIA [None]
  - TYPE 2 DIABETES MELLITUS [None]
